FAERS Safety Report 7821612-9 (Version None)
Quarter: 2011Q4

REPORT INFORMATION
  Report Type: 
  Country: None (occurrence: None)
  Receive Date: 20111018
  Receipt Date: 20101223
  Transmission Date: 20120403
  Serious: No
  Sender: FDA-Public Use
  Company Number: US-ASTRAZENECA-2010SE60637

PATIENT
  Age: 91 Year
  Sex: Female
  Weight: 81.6 kg

DRUGS (4)
  1. SYMBICORT [Suspect]
     Indication: ASTHMA
     Dosage: 160/4.5 MCG TWO TIMES DAILY
     Route: 055
  2. MUCINEX [Concomitant]
  3. FLONASE [Concomitant]
  4. OTHER UNKNOWN [Concomitant]

REACTIONS (2)
  - DYSGEUSIA [None]
  - SPUTUM INCREASED [None]
